FAERS Safety Report 5991116-7 (Version None)
Quarter: 2008Q4

REPORT INFORMATION
  Report Type: 
  Country: None (occurrence: None)
  Receive Date: 20081209
  Receipt Date: 20081126
  Transmission Date: 20090506
  Serious: No
  Sender: FDA-Public Use
  Company Number: US025112

PATIENT
  Sex: Male

DRUGS (4)
  1. FENTORA [Suspect]
     Indication: PAIN PROPHYLAXIS
     Dosage: 200 UG ONCE BUCCAL
     Route: 002
  2. FENTORA [Suspect]
     Indication: PHYSIOTHERAPY
     Dosage: 200 UG ONCE BUCCAL
     Route: 002
  3. OXYCONTIN [Concomitant]
  4. PERCOCET [Concomitant]

REACTIONS (1)
  - CIRCUMSTANCE OR INFORMATION CAPABLE OF LEADING TO MEDICATION ERROR [None]
